FAERS Safety Report 9633556 (Version 2)
Quarter: 2013Q4

REPORT INFORMATION
  Report Type: Report from Study
  Country: NL (occurrence: NL)
  Receive Date: 20131021
  Receipt Date: 20131021
  Transmission Date: 20140711
  Serious: Yes (Other)
  Sender: FDA-Public Use
  Company Number: PHHY2013NL065430

PATIENT
  Age: 74 Year
  Sex: Male

DRUGS (7)
  1. ZOMETA [Suspect]
     Indication: PROSTATE CANCER METASTATIC
     Dosage: 4 MG/ 100 ML, ONCE IN 4 WEEKS
     Route: 042
  2. ZOMETA [Suspect]
     Dosage: 4 MG/ 100 ML, ONCE IN 4 WEEKS
     Route: 042
     Dates: start: 20120913
  3. ZOMETA [Suspect]
     Dosage: 4 MG/ 100 ML, ONCE IN 4 WEEKS
     Route: 042
     Dates: start: 20130528
  4. ZOMETA [Suspect]
     Dosage: 4 MG/ 100 ML, ONCE IN 4 WEEKS
     Route: 042
     Dates: start: 20130625
  5. ZOMETA [Suspect]
     Dosage: 4 MG/ 100 ML, ONCE IN 4 WEEKS
     Route: 042
     Dates: start: 20130919
  6. ZOMETA [Suspect]
     Dosage: 4 MG/ 100 ML, ONCE IN 4 WEEKS
     Route: 042
     Dates: start: 20131017
  7. CALCI CHEW [Concomitant]
     Dosage: 500 MG, QD

REACTIONS (4)
  - Peroneal nerve palsy [Unknown]
  - Metastases to bone [Unknown]
  - Nausea [Not Recovered/Not Resolved]
  - Bone pain [Recovering/Resolving]
